FAERS Safety Report 10227682 (Version 3)
Quarter: 2014Q3

REPORT INFORMATION
  Report Type: Report from Study
  Country: CA (occurrence: CA)
  Receive Date: 20140610
  Receipt Date: 20140714
  Transmission Date: 20150326
  Serious: Yes (Death, Life-Threatening, Other)
  Sender: FDA-Public Use
  Company Number: PHHY2014CA069959

PATIENT
  Age: 77 Year
  Sex: Male

DRUGS (1)
  1. AFINITOR [Suspect]
     Active Substance: EVEROLIMUS
     Indication: NEUROENDOCRINE TUMOUR
     Dosage: 10 MG, DAILY
     Route: 048
     Dates: start: 20140506

REACTIONS (14)
  - Gait disturbance [Unknown]
  - Death [Fatal]
  - Abdominal pain [Unknown]
  - Weight decreased [Unknown]
  - Abdominal distension [Unknown]
  - Fatigue [Unknown]
  - Constipation [Unknown]
  - Diarrhoea [Unknown]
  - Anaemia [Unknown]
  - Dyspnoea [Unknown]
  - Feeling abnormal [Unknown]
  - Pyrexia [Unknown]
  - Insomnia [Unknown]
  - Asthenia [Unknown]

NARRATIVE: CASE EVENT DATE: 20140706
